FAERS Safety Report 7169095-9 (Version None)
Quarter: 2010Q4

REPORT INFORMATION
  Report Type: 
  Country: None (occurrence: None)
  Receive Date: 20101216
  Receipt Date: 20100118
  Transmission Date: 20110411
  Serious: No
  Sender: FDA-Public Use
  Company Number: US-AMGEN-KDL386518

PATIENT

DRUGS (2)
  1. ENBREL [Suspect]
     Indication: PSORIATIC ARTHROPATHY
     Dosage: 50 MG, QWK
     Route: 058
  2. ENBREL [Suspect]
     Indication: PSORIASIS

REACTIONS (7)
  - ABDOMINAL PAIN [None]
  - BACK PAIN [None]
  - CYST [None]
  - DRUG HYPERSENSITIVITY [None]
  - PAIN [None]
  - SINUSITIS [None]
  - UPPER RESPIRATORY TRACT INFECTION [None]
